FAERS Safety Report 9144316 (Version 3)
Quarter: 2014Q4

REPORT INFORMATION
  Report Type: Spontaneous
  Country: FR (occurrence: FR)
  Receive Date: 20130306
  Receipt Date: 20141008
  Transmission Date: 20150529
  Serious: Yes (Hospitalization)
  Sender: FDA-Public Use
  Company Number: FR-TEVA-389339ISR

PATIENT
  Age: 75 Year
  Sex: Female

DRUGS (11)
  1. BIPROFENID [Concomitant]
     Active Substance: KETOPROFEN
     Dates: start: 20110510
  2. ARCOXIA [Suspect]
     Active Substance: ETORICOXIB
     Dosage: 1 DOSAGE FORMS DAILY;
     Route: 048
     Dates: end: 20110510
  3. AVLOCARDYL [Suspect]
     Active Substance: PROPRANOLOL HYDROCHLORIDE
     Dosage: 60 MILLIGRAM DAILY;
     Route: 048
  4. ESTREVA 0,1 %, GEL [Suspect]
     Active Substance: ESTRADIOL
     Route: 003
  5. UTROGESTAN [Suspect]
     Active Substance: PROGESTERONE
     Route: 048
  6. IXPRIM [Concomitant]
     Active Substance: ACETAMINOPHEN\TRAMADOL HYDROCHLORIDE
  7. FLEXEA [Concomitant]
  8. MEDIATOR 150 MG, COMPRIME ENROBE [Suspect]
     Active Substance: BENFLUOREX
     Indication: OVERWEIGHT
     Route: 048
     Dates: start: 1994
  9. MEDIATOR 150 MG, COMPRIME ENROBE [Suspect]
     Active Substance: BENFLUOREX
     Route: 048
     Dates: start: 2001, end: 2003
  10. MEDIATOR 150 MG, COMPRIME ENROBE [Suspect]
     Active Substance: BENFLUOREX
     Route: 048
     Dates: start: 2007, end: 2008
  11. LEVOTHYROX [Suspect]
     Active Substance: LEVOTHYROXINE
     Dosage: 80 MICROGRAM DAILY;
     Route: 048

REACTIONS (1)
  - Pulmonary arterial hypertension [Not Recovered/Not Resolved]

NARRATIVE: CASE EVENT DATE: 20110209
